FAERS Safety Report 5073037-X (Version None)
Quarter: 2006Q3

REPORT INFORMATION
  Report Type: 
  Country: None (occurrence: None)
  Receive Date: 20060802
  Receipt Date: 20060721
  Transmission Date: 20061208
  Serious: Yes (Death)
  Sender: FDA-Public Use
  Company Number: 2006JP002317

PATIENT
  Age: 44 Year
  Sex: Male

DRUGS (2)
  1. PROGRAF [Suspect]
     Indication: LIVER TRANSPLANT
     Dosage: ORAL
     Route: 048
  2. PREDNISOLONE [Concomitant]

REACTIONS (7)
  - BRAIN STEM SYNDROME [None]
  - CONDITION AGGRAVATED [None]
  - DEPRESSED LEVEL OF CONSCIOUSNESS [None]
  - HEPATITIS C [None]
  - MENINGITIS BACTERIAL [None]
  - MUCORMYCOSIS [None]
  - RESPIRATORY DISORDER [None]
